FAERS Safety Report 8448677-8 (Version None)
Quarter: 2012Q2

REPORT INFORMATION
  Report Type: 
  Country: None (occurrence: None)
  Receive Date: 20120619
  Receipt Date: 20120611
  Transmission Date: 20120825
  Serious: Yes (Life-Threatening)
  Sender: FDA-Public Use
  Company Number: JP-MERCK-1206USA01785

PATIENT
  Age: 76 Year
  Sex: Male

DRUGS (13)
  1. RENOPENT [Concomitant]
     Dosage: AFTER THE LUNCH
     Route: 048
  2. KENTAN [Concomitant]
     Dosage: AT THE THERMACOGENOSIS PAIN HEAD
     Route: 048
  3. AMLODIPINE BESYLATE [Concomitant]
     Dosage: AFTER THE LUNCH
     Route: 048
  4. LIVALO [Concomitant]
     Dosage: AFTER THE LUNCH
     Route: 048
  5. GASRICK D [Concomitant]
     Dosage: AFTER THE LUNCH
     Route: 048
  6. CARVEDILOL [Concomitant]
     Dosage: AFTER THE LUNCH
     Route: 048
  7. OLOPATADINE HCL [Concomitant]
     Dosage: AFTER THE LUNCH
     Route: 048
  8. EURAX [Concomitant]
     Route: 061
  9. STROMECTOL [Suspect]
     Indication: ACARODERMATITIS
     Route: 048
     Dates: start: 20120418, end: 20120418
  10. ASPIRIN [Concomitant]
     Dosage: AFTER THE LUNCH
     Route: 048
  11. JANUVIA [Concomitant]
     Dosage: AFTER THE LUNCH
     Route: 048
  12. AVAPRO [Concomitant]
     Dosage: AFTER THE LUNCH
     Route: 048
  13. PLAVIX [Concomitant]
     Dosage: AFTER THE LUNCH
     Route: 048

REACTIONS (3)
  - OFF LABEL USE [None]
  - EOSINOPHILIA [None]
  - DERMATITIS EXFOLIATIVE [None]
